FAERS Safety Report 4430541-2 (Version None)
Quarter: 2004Q3

REPORT INFORMATION
  Report Type: 
  Country: None (occurrence: None)
  Receive Date: 20040818
  Receipt Date: 20040730
  Transmission Date: 20050211
  Serious: Yes (Hospitalization)
  Sender: FDA-Public Use
  Company Number: FR_040704539

PATIENT
  Age: 67 Year
  Sex: Male

DRUGS (5)
  1. ZYPREXA [Suspect]
     Indication: SCHIZOPHRENIA, RESIDUAL TYPE
     Dosage: 5 MG/1 DAY
     Dates: start: 20040109, end: 20040115
  2. AUGMENTIN '125' [Concomitant]
  3. ACETAMINOPHEN [Concomitant]
  4. OFLOXACIN [Concomitant]
  5. ZYRTEC [Concomitant]

REACTIONS (1)
  - HENOCH-SCHONLEIN PURPURA [None]
